FAERS Safety Report 19488104 (Version 3)
Quarter: 2023Q1

REPORT INFORMATION
  Report Type: Spontaneous
  Country: JP (occurrence: None)
  Receive Date: 20210702
  Receipt Date: 20230328
  Transmission Date: 20230417
  Serious: Yes (Hospitalization, Congenital Anomaly, Other)
  Sender: FDA-Public Use
  Company Number: 2021A570804

PATIENT
  Age: 1 Year
  Sex: Male
  Weight: 10 kg

DRUGS (2)
  1. FASENRA [Suspect]
     Active Substance: BENRALIZUMAB
     Indication: Asthma
     Route: 064
     Dates: end: 20190729
  2. SYMBICORT [Suspect]
     Active Substance: BUDESONIDE\FORMOTEROL FUMARATE DIHYDRATE
     Indication: Asthma
     Dosage: UNKNOWN UNKNOWN
     Route: 064

REACTIONS (3)
  - Foetal exposure timing unspecified [Unknown]
  - Cleft lip and palate [Unknown]
  - Bradycardia [Unknown]

NARRATIVE: CASE EVENT DATE: 20200505
